FAERS Safety Report 5347555-0 (Version None)
Quarter: 2007Q2

REPORT INFORMATION
  Report Type: 
  Country: None (occurrence: None)
  Receive Date: 20070504
  Receipt Date: 20070122
  Transmission Date: 20071010
  Serious: Yes (Other)
  Sender: FDA-Public Use
  Company Number: PHEH2007US00555

PATIENT
  Age: 69 Year
  Sex: Female

DRUGS (10)
  1. DIOVAN HCT [Suspect]
     Indication: HYPERTENSION
     Dosage: 320/12.5 MG QD
  2. TRICOR [Concomitant]
  3. TRAMADOL HCL [Concomitant]
  4. COREG [Concomitant]
  5. ASPIRIN [Concomitant]
  6. NOVOLOG [Concomitant]
  7. ENBREL [Concomitant]
  8. ALEVE [Concomitant]
  9. PROTONIX [Concomitant]
  10. RANEXA (RANOLAZINE) [Concomitant]

REACTIONS (2)
  - BLOOD CREATININE INCREASED [None]
  - BLOOD UREA INCREASED [None]
